FAERS Safety Report 10158825 (Version 1)
Quarter: 2014Q2

REPORT INFORMATION
  Report Type: Spontaneous
  Country: US (occurrence: US)
  Receive Date: 20140508
  Receipt Date: 20140508
  Transmission Date: 20141212
  Serious: No
  Sender: FDA-Public Use
  Company Number: US-BIOGENIDEC-2014BI038877

PATIENT
  Age: 71 Year
  Sex: Female

DRUGS (7)
  1. TECFIDERA [Suspect]
     Indication: MULTIPLE SCLEROSIS
     Route: 048
     Dates: start: 20140203
  2. ALLOPURINOL [Concomitant]
  3. ASPIRIN LOW DOSE [Concomitant]
  4. HYDROXYCHLOROQUINE SULFATE [Concomitant]
  5. LISINOPRIL [Concomitant]
  6. MECLIZINE HCI [Concomitant]
  7. POTASSIUM CHLORIDE CRYS ER [Concomitant]

REACTIONS (1)
  - Pain [Unknown]
